FAERS Safety Report 20848577 (Version 2)
Quarter: 2022Q3

REPORT INFORMATION
  Report Type: Other
  Country: CA (occurrence: CA)
  Receive Date: 20220519
  Receipt Date: 20220817
  Transmission Date: 20221026
  Serious: Yes (Hospitalization)
  Sender: FDA-Public Use
  Company Number: CA-DECIPHERA PHARMACEUTICALS LLC-2022CA000405

PATIENT
  Sex: Female

DRUGS (2)
  1. QINLOCK [Suspect]
     Active Substance: RIPRETINIB
     Indication: Product used for unknown indication
     Dosage: 150 MILLIGRAM, QD
     Route: 048
     Dates: start: 20220412
  2. QINLOCK [Suspect]
     Active Substance: RIPRETINIB
     Dosage: 50 MILLIGRAM, QD
     Route: 048
     Dates: start: 20220418, end: 20220808

REACTIONS (4)
  - Cough [Unknown]
  - Disease progression [Unknown]
  - General physical health deterioration [Unknown]
  - Underdose [Unknown]

NARRATIVE: CASE EVENT DATE: 20220101
